FAERS Safety Report 7819304-5 (Version None)
Quarter: 2011Q4

REPORT INFORMATION
  Report Type: 
  Country: None (occurrence: None)
  Receive Date: 20111018
  Receipt Date: 20101209
  Transmission Date: 20120403
  Serious: No
  Sender: FDA-Public Use
  Company Number: US-ASTRAZENECA-2010SE58444

PATIENT
  Age: 75 Year
  Sex: Male

DRUGS (5)
  1. AZITHROMYCIN [Concomitant]
  2. NAPROXEN [Concomitant]
  3. PREDNISONE [Concomitant]
  4. PRAMADOL [Concomitant]
  5. SYMBICORT [Suspect]
     Indication: CHRONIC OBSTRUCTIVE PULMONARY DISEASE
     Dosage: 160/4.5 TWO PUFFS TWO TIMES A DAY
     Route: 055
     Dates: start: 20100901

REACTIONS (6)
  - DYSPNOEA [None]
  - MUSCULOSKELETAL PAIN [None]
  - MUSCLE SPASMS [None]
  - LUNG INFECTION [None]
  - DRUG INEFFECTIVE [None]
  - DYSPHONIA [None]
